FAERS Safety Report 9221767 (Version 1)
Quarter: 2013Q2

REPORT INFORMATION
  Report Type: Spontaneous
  Country: DE (occurrence: DE)
  Receive Date: 20130410
  Receipt Date: 20130410
  Transmission Date: 20140414
  Serious: Yes (Death)
  Sender: FDA-Public Use
  Company Number: DE-JNJFOC-20130403031

PATIENT
  Age: 91 Year
  Sex: Female
  Weight: 49.89 kg

DRUGS (1)
  1. RIVAROXABAN [Suspect]
     Indication: DEEP VEIN THROMBOSIS
     Route: 048
     Dates: start: 20130103, end: 20130225

REACTIONS (3)
  - Decubitus ulcer [Fatal]
  - Decubitus ulcer [Fatal]
  - Decubitus ulcer [Not Recovered/Not Resolved]
